FAERS Safety Report 19928504 (Version 1)
Quarter: 2021Q4

REPORT INFORMATION
  Report Type: Spontaneous
  Country: CN (occurrence: CN)
  Receive Date: 20211007
  Receipt Date: 20211007
  Transmission Date: 20220303
  Serious: Yes (Hospitalization, Other)
  Sender: FDA-Public Use
  Company Number: CN-NOVARTISPH-NVSC2021CN228306

PATIENT
  Age: 48 Year
  Sex: Male
  Weight: 65 kg

DRUGS (2)
  1. CARBAMAZEPINE [Suspect]
     Active Substance: CARBAMAZEPINE
     Indication: Analgesic therapy
     Dosage: 0.2 G, BID
     Route: 048
     Dates: start: 20210721, end: 20210731
  2. LOXOPROFEN SODIUM [Suspect]
     Active Substance: LOXOPROFEN SODIUM
     Indication: Analgesic therapy
     Dosage: 60 MG, BID, AT THIS NIGHT
     Route: 048
     Dates: start: 20210720, end: 20210731

REACTIONS (1)
  - Platelet count decreased [Not Recovered/Not Resolved]

NARRATIVE: CASE EVENT DATE: 20210731
